FAERS Safety Report 21853856 (Version 1)
Quarter: 2023Q1

REPORT INFORMATION
  Report Type: Spontaneous
  Country: US (occurrence: None)
  Receive Date: 20230111
  Receipt Date: 20230111
  Transmission Date: 20230417
  Serious: Yes (Hospitalization)
  Sender: FDA-Public Use
  Company Number: None

PATIENT
  Sex: Female

DRUGS (2)
  1. BENADRYL [Suspect]
     Active Substance: DIPHENHYDRAMINE HYDROCHLORIDE
     Indication: Hypogammaglobulinaemia
     Dosage: 20 GM EVERY 4 WEEKS IV ?
     Route: 042
     Dates: start: 202203
  2. GAMMAGARD LIQUID [Suspect]
     Active Substance: HUMAN IMMUNOGLOBULIN G
     Indication: Hypogammaglobulinaemia
     Dosage: 30 GM EVERY 4 WEEKS IV
     Route: 042
     Dates: start: 202203

REACTIONS (3)
  - Overdose [None]
  - Therapy interrupted [None]
  - Product dispensing error [None]
